FAERS Safety Report 6331696-5 (Version None)
Quarter: 2009Q3

REPORT INFORMATION
  Report Type: 
  Country: None (occurrence: None)
  Receive Date: 20090827
  Receipt Date: 20090819
  Transmission Date: 20100115
  Serious: Yes (Other)
  Sender: FDA-Public Use
  Company Number: JP-BAXTER-2009BH012887

PATIENT
  Age: 66 Year
  Sex: Female

DRUGS (5)
  1. ENDOXAN BAXTER [Suspect]
     Indication: LYMPHOMA
     Route: 065
     Dates: start: 20071105
  2. PREDONINE [Suspect]
     Indication: LYMPHOMA
     Route: 065
     Dates: start: 20071105
  3. THERARUBICIN [Suspect]
     Indication: LYMPHOMA
     Route: 065
     Dates: start: 20071105
  4. VINCRISTINE SULFATE GENERIC [Suspect]
     Indication: LYMPHOMA
     Route: 065
     Dates: start: 20071105
  5. RITUXIMAB [Suspect]
     Indication: LYMPHOMA
     Route: 065
     Dates: start: 20070101

REACTIONS (1)
  - SMALL INTESTINAL PERFORATION [None]
